FAERS Safety Report 22654794 (Version 1)
Quarter: 2023Q2

REPORT INFORMATION
  Report Type: Spontaneous
  Country: US (occurrence: None)
  Receive Date: 20230628
  Receipt Date: 20230628
  Transmission Date: 20230721
  Serious: Yes (Hospitalization)
  Sender: FDA-Public Use
  Company Number: None

PATIENT
  Sex: Male

DRUGS (7)
  1. MYCOPHENOLIC ACID [Suspect]
     Active Substance: MYCOPHENOLIC ACID
     Indication: Liver transplant
     Dosage: 250 MG ORAL?TAKE 3 CAPSULES (750 MG TOTAL) BY MOUTH 2 TIMES DAILY AT 9AM AND 9PM. PREVENTS REJECTION
     Route: 048
     Dates: start: 20230323
  2. BIMATOPROST [Concomitant]
     Active Substance: BIMATOPROST
  3. FUROSEMIDE [Concomitant]
     Active Substance: FUROSEMIDE
  4. LOSARTAN POTASSIUM [Concomitant]
     Active Substance: LOSARTAN POTASSIUM
  5. NOVOLOG [Concomitant]
  6. SPIRONOLACT [Concomitant]
  7. TACROLIMUS [Concomitant]
     Active Substance: TACROLIMUS

REACTIONS (1)
  - Pancreatitis [None]
